FAERS Safety Report 4367820-3 (Version None)
Quarter: 2004Q2

REPORT INFORMATION
  Report Type: 
  Country: None (occurrence: None)
  Receive Date: 20040527
  Receipt Date: 20030428
  Transmission Date: 20050107
  Serious: Yes (Other)
  Sender: FDA-Public Use
  Company Number: ZONI001093

PATIENT
  Age: 71 Year
  Sex: Female
  Weight: 58.0604 kg

DRUGS (7)
  1. ZONEGRAN [Suspect]
     Indication: CONVULSION
     Dosage: 300 MG DAILY ORAL
     Route: 048
  2. TOPROL-XL [Concomitant]
  3. KLONOPIN [Concomitant]
  4. PREMPRO (MEDROXYPROGESTERONE ACETATE) [Concomitant]
  5. LIPITOR [Concomitant]
  6. ASPIRIN [Concomitant]
  7. COLACE (DOCUSATE) [Concomitant]

REACTIONS (3)
  - CONVULSION [None]
  - DECREASED APPETITE [None]
  - WEIGHT DECREASED [None]
